FAERS Safety Report 7635621-6 (Version None)
Quarter: 2011Q3

REPORT INFORMATION
  Report Type: 
  Country: None (occurrence: None)
  Receive Date: 20110726
  Receipt Date: 20110721
  Transmission Date: 20111222
  Serious: Yes (Other)
  Sender: FDA-Public Use
  Company Number: US-SANOFI-AVENTIS-2011SA046900

PATIENT
  Age: 82 Year
  Sex: Female

DRUGS (4)
  1. MULTAQ [Suspect]
     Indication: ATRIAL FIBRILLATION
     Route: 048
     Dates: start: 20100101
  2. ALL OTHER THERAPEUTIC PRODUCTS [Concomitant]
  3. HYDROCHLOROTHIAZIDE [Concomitant]
  4. DIGOXIN [Concomitant]

REACTIONS (6)
  - ERYTHEMA [None]
  - DRUG ADMINISTRATION ERROR [None]
  - TACHYCARDIA [None]
  - ATRIAL FIBRILLATION [None]
  - WEIGHT DECREASED [None]
  - AGEUSIA [None]
